FAERS Safety Report 8108739-1 (Version None)
Quarter: 2012Q1

REPORT INFORMATION
  Report Type: 
  Country: None (occurrence: None)
  Receive Date: 20120202
  Receipt Date: 20120125
  Transmission Date: 20120608
  Serious: Yes (Other)
  Sender: FDA-Public Use
  Company Number: PHHY2011PT108842

PATIENT
  Age: 60 Year
  Sex: Male

DRUGS (1)
  1. CARVEDILOL [Suspect]
     Indication: BUNDLE BRANCH BLOCK LEFT
     Dosage: 12.5 MG
     Route: 048
     Dates: end: 20111117

REACTIONS (2)
  - PARAESTHESIA [None]
  - DRUG INEFFECTIVE [None]
